FAERS Safety Report 5752982-3 (Version None)
Quarter: 2008Q2

REPORT INFORMATION
  Report Type: 
  Country: None (occurrence: None)
  Receive Date: 20080527
  Receipt Date: 20080514
  Transmission Date: 20081010
  Serious: Yes (Hospitalization)
  Sender: FDA-Public Use
  Company Number: 167-21880-08041669

PATIENT
  Age: 68 Year
  Sex: Male

DRUGS (2)
  1. REVLIMID [Suspect]
     Indication: MULTIPLE MYELOMA
     Dosage: 25 MG, DAILY, ORAL
     Route: 048
  2. PREDNISONE TAB [Concomitant]

REACTIONS (5)
  - ARTHRALGIA [None]
  - BEDRIDDEN [None]
  - MOUTH ULCERATION [None]
  - MYALGIA [None]
  - THROMBOCYTOPENIA [None]
